FAERS Safety Report 10277247 (Version 2)
Quarter: 2014Q3

REPORT INFORMATION
  Report Type: Other
  Country: US (occurrence: US)
  Receive Date: 20140703
  Receipt Date: 20140718
  Transmission Date: 20150326
  Serious: Yes (Other)
  Sender: FDA-Public Use
  Company Number: US-ENDO PHARMACEUTICALS INC-FORT20140151

PATIENT
  Age: 59 Year
  Sex: Male

DRUGS (2)
  1. DELATESTRYL [Suspect]
     Active Substance: TESTOSTERONE ENANTHATE
     Indication: BLOOD TESTOSTERONE DECREASED
     Route: 051
     Dates: start: 20121201, end: 201306
  2. DELATESTRYL [Suspect]
     Active Substance: TESTOSTERONE ENANTHATE
     Route: 065
     Dates: start: 201306

REACTIONS (2)
  - Aquagenic pruritus [Recovering/Resolving]
  - Polycythaemia [Recovering/Resolving]

NARRATIVE: CASE EVENT DATE: 2013
